FAERS Safety Report 18311596 (Version 1)
Quarter: 2020Q3

REPORT INFORMATION
  Report Type: Spontaneous
  Country: US (occurrence: US)
  Receive Date: 20200925
  Receipt Date: 20200925
  Transmission Date: 20201103
  Serious: Yes (Life-Threatening, Other)
  Sender: FDA-Public Use
  Company Number: US-AUROBINDO-AUR-APL-2020-049006

PATIENT
  Age: 21 Year
  Sex: Female

DRUGS (1)
  1. ARGATROBAN IN 0.9% SODIUM CHLORIDE INJECTION [Suspect]
     Active Substance: ARGATROBAN
     Indication: PULMONARY EMBOLISM
     Dosage: UNK
     Route: 065
     Dates: start: 20200913

REACTIONS (3)
  - Endotracheal intubation [Unknown]
  - Product administration interrupted [Unknown]
  - Product deposit [Unknown]

NARRATIVE: CASE EVENT DATE: 20200916
